FAERS Safety Report 5226315-5 (Version None)
Quarter: 2007Q1

REPORT INFORMATION
  Report Type: 
  Country: None (occurrence: None)
  Receive Date: 20070201
  Receipt Date: 20070124
  Transmission Date: 20070707
  Serious: Yes (Other)
  Sender: FDA-Public Use
  Company Number: DE-ELI_LILLY_AND_COMPANY-DE200701002632

PATIENT
  Age: 43 Year
  Sex: Female

DRUGS (3)
  1. ZYPREXA [Suspect]
     Indication: SCHIZOAFFECTIVE DISORDER
     Dosage: 40MG, DAILY (1/D)
     Route: 048
     Dates: start: 20061101
  2. ZYPREXA [Suspect]
     Dosage: 20 MG, DAILY (1/D)
     Route: 048
     Dates: start: 20070110
  3. TRANXILIUM/GFR/ [Concomitant]
     Dosage: 30 MG, UNK

REACTIONS (6)
  - BLOOD AMYLASE INCREASED [None]
  - FLATULENCE [None]
  - LIPASE INCREASED [None]
  - NAUSEA [None]
  - PANCREATIC DISORDER [None]
  - PRESCRIBED OVERDOSE [None]
